FAERS Safety Report 18717811 (Version 1)
Quarter: 2021Q1

REPORT INFORMATION
  Report Type: Spontaneous
  Country: US (occurrence: US)
  Receive Date: 20210108
  Receipt Date: 20210108
  Transmission Date: 20210419
  Serious: No
  Sender: FDA-Public Use
  Company Number: US-BAYER-2021-000040

PATIENT
  Age: 74 Year
  Sex: Female

DRUGS (1)
  1. ALEVE [Suspect]
     Active Substance: NAPROXEN SODIUM
     Indication: ARTHRITIS
     Dosage: 4 DF, QD

REACTIONS (8)
  - Occult blood positive [Unknown]
  - Blood urea increased [None]
  - Blood creatinine increased [None]
  - Haemorrhoids [Unknown]
  - Eosinophil count increased [None]
  - Product use issue [Unknown]
  - Product use in unapproved indication [Unknown]
  - Ulcer [Unknown]
